FAERS Safety Report 6896359-6 (Version None)
Quarter: 2010Q3

REPORT INFORMATION
  Report Type: 
  Country: None (occurrence: None)
  Receive Date: 20100802
  Receipt Date: 20090121
  Transmission Date: 20110219
  Serious: No
  Sender: FDA-Public Use
  Company Number: US-PFIZER INC-2009159511

PATIENT
  Sex: Female
  Weight: 65.8 kg

DRUGS (1)
  1. GABAPENTIN [Suspect]
     Indication: MYELITIS TRANSVERSE
     Dosage: 2400 MG, UNK

REACTIONS (4)
  - HYPOAESTHESIA [None]
  - INFLUENZA LIKE ILLNESS [None]
  - ORAL PAIN [None]
  - ULCER [None]
